FAERS Safety Report 5848758-9 (Version None)
Quarter: 2008Q3

REPORT INFORMATION
  Report Type: 
  Country: None (occurrence: None)
  Receive Date: 20080818
  Receipt Date: 20080731
  Transmission Date: 20090109
  Serious: No
  Sender: FDA-Public Use
  Company Number: US-BOEHRINGER INGELHEIM GMBH, GERMANY-2008-BP-12061BP

PATIENT
  Age: 64 Year
  Sex: Male

DRUGS (1)
  1. ZANTAC 150 [Suspect]
     Indication: GASTROOESOPHAGEAL REFLUX DISEASE
     Route: 048
     Dates: start: 20080630

REACTIONS (4)
  - GASTROINTESTINAL SOUNDS ABNORMAL [None]
  - INSOMNIA [None]
  - NOCTURIA [None]
  - POLLAKIURIA [None]
